FAERS Safety Report 8586573 (Version 4)
Quarter: 2015Q2

REPORT INFORMATION
  Report Type: Spontaneous
  Country: DE (occurrence: DE)
  Receive Date: 20120530
  Receipt Date: 20150508
  Transmission Date: 20150821
  Serious: Yes (Hospitalization, Other)
  Sender: FDA-Public Use
  Company Number: DE-UCBSA-058008

PATIENT
  Age: 40 Year
  Sex: Female

DRUGS (14)
  1. VANCOMYCIN [Suspect]
     Active Substance: VANCOMYCIN
     Indication: ANTIBIOTIC THERAPY
  2. L-THYROXIN [Concomitant]
     Active Substance: LEVOTHYROXINE SODIUM
     Dosage: 50 MICRO G
  3. PROCORALAN [Concomitant]
     Active Substance: IVABRADINE
     Dosage: 7.5 MG, 2X/DAY (BID)
  4. TAZOBAC [Suspect]
     Active Substance: PIPERACILLIN SODIUM\TAZOBACTAM SODIUM
     Indication: ANTIBIOTIC THERAPY
  5. DECORTIN H [Concomitant]
     Active Substance: PREDNISOLONE
     Dosage: 10 MG MORNING
  6. BRONCHORETARD [Concomitant]
     Active Substance: THEOPHYLLINE ANHYDROUS
     Dosage: 200-0-350 MG
  7. VIMPAT [Suspect]
     Active Substance: LACOSAMIDE
     Indication: EPILEPSY
     Dosage: 50 MG, 2X/DAY (BID)
     Route: 048
     Dates: end: 20120412
  8. SEROQUEL [Suspect]
     Active Substance: QUETIAPINE FUMARATE
     Dosage: FOR THE NIGHT
  9. DILTAHEXAL [Concomitant]
     Dosage: 90 MG (1-0-1/2)  PATIENT IS RECEIVING CONTROLLED RELEASE TABLETS
  10. CLOPIDOGREL [Concomitant]
     Active Substance: CLOPIDOGREL BISULFATE
     Dosage: 75
  11. FORTUM [Suspect]
     Active Substance: CEFTAZIDIME
     Indication: ANTIBIOTIC THERAPY
  12. VANCOMYCIN [Suspect]
     Active Substance: VANCOMYCIN
     Route: 048
  13. OXCARBAZEPIN [Concomitant]
     Active Substance: OXCARBAZEPINE
     Dosage: DAILY DOSE: 900
     Route: 048
  14. ASTHMA SPRAY [Concomitant]

REACTIONS (5)
  - Diarrhoea [Unknown]
  - Rash [Unknown]
  - Febrile infection [Unknown]
  - Abdominal pain [Unknown]
  - Palpitations [Unknown]

NARRATIVE: CASE EVENT DATE: 201202
